FAERS Safety Report 10209842 (Version 1)
Quarter: 2014Q2

REPORT INFORMATION
  Report Type: Spontaneous
  Country: SE (occurrence: SE)
  Receive Date: 20140602
  Receipt Date: 20140602
  Transmission Date: 20141212
  Serious: Yes (Hospitalization)
  Sender: FDA-Public Use
  Company Number: PHHY2014SE062956

PATIENT
  Age: 87 Year
  Sex: Female

DRUGS (7)
  1. ESIDREX [Suspect]
     Dosage: 1 DF (25MG) QD
     Route: 048
     Dates: start: 20140405, end: 20140405
  2. HYDROCHLOROTHIAZIDE, LOSARTAN [Suspect]
     Dosage: UNK UKN, UNK
  3. FELODIPINE [Concomitant]
     Dosage: UNK UKN, UNK
  4. KAVEPENIN [Concomitant]
     Dosage: UNK UKN, UNK
  5. DOXYFERM [Concomitant]
     Dosage: UNK UKN, UNK
  6. LEVAXIN [Concomitant]
     Dosage: UNK UKN, UNK
  7. WARAN [Concomitant]
     Dosage: UNK UKN, UNK

REACTIONS (1)
  - Hyponatraemia [Unknown]
